FAERS Safety Report 9450561 (Version 1)
Quarter: 2013Q3

REPORT INFORMATION
  Report Type: Report from Study
  Country: US (occurrence: AU)
  Receive Date: 20130809
  Receipt Date: 20130809
  Transmission Date: 20140515
  Serious: Yes (Other)
  Sender: FDA-Public Use
  Company Number: AU-PFIZER INC-2013227945

PATIENT
  Age: 14 Year
  Sex: Female

DRUGS (14)
  1. CYCLOPHOSPHAMIDE [Suspect]
     Indication: HODGKIN^S DISEASE
     Dosage: 1200 MG/M2, DAY 0 (REPEAT COURSE EVERY 21 DAYS)
     Route: 042
  2. CYCLOPHOSPHAMIDE [Suspect]
     Dosage: 600 MG/M2, DAY 0 (REPEAT COURSE EVERY 28 DAYS)
     Route: 042
  3. ETOPOSIDE [Suspect]
     Indication: HODGKIN^S DISEASE
     Dosage: 200 MG/M2 IV, DAYS 0, 1, 2(REPEAT COURSE EVERY 21 DAYS)
     Route: 042
  4. ADRIAMYCIN [Suspect]
     Indication: HODGKIN^S DISEASE
     Dosage: 35 MG/M2, DAY 0 (REPEAT COURSE EVERY 21 DAYS)
     Route: 042
  5. ADRIAMYCIN [Suspect]
     Dosage: 35 MG/M2, DAY 7 (REPEAT COURSE EVERY 28 DAYS))
     Route: 042
  6. VINCRISTINE SULFATE [Suspect]
     Indication: HODGKIN^S DISEASE
     Dosage: 2 MG/M2 (MAXIMUM 2 MG) IV PUSH, DAY 7 (REPEAT COURSE EVERY 21 DAYS)
     Route: 042
  7. VINCRISTINE SULFATE [Suspect]
     Dosage: 1.4 MG/M2 (NO MAXIMUM DOSE), DAY 0 (REPEAT COURSE EVERY 28 DAYS)
     Route: 042
  8. BLEOMYCIN [Suspect]
     Indication: HODGKIN^S DISEASE
     Dosage: 10 U/M2, DAY 7 (REPEAT COURSE EVERY 21 DAYS)
     Route: 042
  9. BLEOMYCIN [Suspect]
     Dosage: 10 U/M2, DAY 7 (REPEAT COURSE EVERY 28 DAYS)
     Route: 042
  10. PROCARBAZINE [Suspect]
     Indication: HODGKIN^S DISEASE
     Dosage: 100 MG/M2 PER DAY, DAYS 0-6 (REPEAT COURSE EVERY 21 DAYS)
  11. PROCARBAZINE [Suspect]
     Dosage: 100 MG/M2 PER DAY, DAYS 0-6 (REPEAT COURSE EVERY 28 DAYS)
  12. PREDNISOLONE [Suspect]
     Indication: HODGKIN^S DISEASE
     Dosage: 40 MG/M2 PER DAY PO, DIVIDED INTO 2 DOSES, DAYS 0-13 (REPEAT COURSE EVERY 21 DAYS)
     Route: 048
  13. PREDNISOLONE [Suspect]
     Dosage: 40 MG/M2 PER DAY PO, DIVIDED INTO 2 DOSES, DAYS 0-13 (REPEAT COURSE EVERY 28 DAYS)
     Route: 048
  14. VINBLASTINE [Suspect]
     Indication: HODGKIN^S DISEASE
     Dosage: 6 MG/M2, DAY 7 (REPEAT COURSE EVERY 28 DAYS)
     Route: 042

REACTIONS (1)
  - Osteonecrosis [Not Recovered/Not Resolved]
